FAERS Safety Report 6937064-7 (Version None)
Quarter: 2010Q3

REPORT INFORMATION
  Report Type: 
  Country: None (occurrence: None)
  Receive Date: 20100823
  Receipt Date: 20100816
  Transmission Date: 20110219
  Serious: Yes (Other)
  Sender: FDA-Public Use
  Company Number: PHHY2010CA54432

PATIENT

DRUGS (4)
  1. ALISKIREN ALI+ [Suspect]
     Dosage: 150 MG DAILY
  2. CALCIUM CHANNEL BLOCKERS [Concomitant]
  3. DIURETICS [Concomitant]
  4. ACE INHIBITOR NOS [Concomitant]

REACTIONS (2)
  - FALL [None]
  - FRACTURE [None]
